FAERS Safety Report 14474887 (Version 2)
Quarter: 2020Q2

REPORT INFORMATION
  Report Type: Spontaneous
  Country: US (occurrence: US)
  Receive Date: 20180201
  Receipt Date: 20200605
  Transmission Date: 20200713
  Serious: Yes (Hospitalization)
  Sender: FDA-Public Use
  Company Number: US-MYLANLABS-2018M1006735

PATIENT
  Age: 61 Year
  Sex: Male
  Weight: 70 kg

DRUGS (11)
  1. MELOXICAM. [Concomitant]
     Active Substance: MELOXICAM
     Indication: PRODUCT USED FOR UNKNOWN INDICATION
     Dosage: 15 MILLIGRAM, QD
     Route: 065
  2. DIAZEPAM. [Concomitant]
     Active Substance: DIAZEPAM
     Indication: PRODUCT USED FOR UNKNOWN INDICATION
     Dosage: 5 MILLIGRAM, BID
     Route: 065
  3. DIPHENHYDRAMINE. [Concomitant]
     Active Substance: DIPHENHYDRAMINE
     Indication: INSOMNIA
     Dosage: AS NECESSARY
     Route: 065
  4. HYDROCODONE [Concomitant]
     Active Substance: HYDROCODONE
     Indication: PRODUCT USED FOR UNKNOWN INDICATION
     Dosage: 7.5 MG 6 HRS AS NEEDED
     Route: 065
  5. CAFFEINE. [Concomitant]
     Active Substance: CAFFEINE
     Indication: INSOMNIA
     Dosage: 200 MILLIGRAM, QD
     Route: 065
  6. BACLOFEN. [Suspect]
     Active Substance: BACLOFEN
     Dosage: 20 MILLIGRAM, TID
  7. ESCITALOPRAM [Concomitant]
     Active Substance: ESCITALOPRAM OXALATE
     Indication: PRODUCT USED FOR UNKNOWN INDICATION
     Dosage: 10 MILLIGRAM, QD
     Route: 065
  8. BACLOFEN. [Suspect]
     Active Substance: BACLOFEN
     Dosage: 10 DOSAGE FORM, QD
  9. CANNABIS [Concomitant]
     Active Substance: CANNABIS SATIVA SUBSP. INDICA TOP
     Indication: PRODUCT USED FOR UNKNOWN INDICATION
     Route: 065
  10. PREGABALIN. [Concomitant]
     Active Substance: PREGABALIN
     Indication: PRODUCT USED FOR UNKNOWN INDICATION
     Dosage: 75 MILLIGRAM, BID
     Route: 065
  11. ACETAMINOPHEN. [Concomitant]
     Active Substance: ACETAMINOPHEN
     Indication: PRODUCT USED FOR UNKNOWN INDICATION
     Dosage: 325 MILLIGRAM, Q6H AS NEEDED
     Route: 065

REACTIONS (15)
  - Insomnia [Recovering/Resolving]
  - Overdose [Recovering/Resolving]
  - Dry mouth [Recovering/Resolving]
  - Drug withdrawal syndrome [Recovering/Resolving]
  - Delirium [Recovering/Resolving]
  - Speech disorder [Recovering/Resolving]
  - Agitation [Recovering/Resolving]
  - Blood pressure increased [Recovering/Resolving]
  - Blood creatine phosphokinase increased [Recovering/Resolving]
  - Mydriasis [Recovering/Resolving]
  - Mental status changes [Recovering/Resolving]
  - Intentional product misuse [Recovering/Resolving]
  - Hallucinations, mixed [Recovering/Resolving]
  - Confusional state [Recovering/Resolving]
  - Aggression [Recovering/Resolving]
